FAERS Safety Report 8555677-6 (Version None)
Quarter: 2012Q3

REPORT INFORMATION
  Report Type: 
  Country: None (occurrence: None)
  Receive Date: 20120801
  Receipt Date: 20120716
  Transmission Date: 20120928
  Serious: Yes (Other)
  Sender: FDA-Public Use
  Company Number: SE-AMGEN-US372484

PATIENT
  Age: 40 Year
  Sex: Male

DRUGS (1)
  1. ETANERCEPT [Suspect]
     Indication: JUVENILE ARTHRITIS
     Dosage: UNK
     Dates: start: 20081225, end: 20090101

REACTIONS (1)
  - NEUROPATHY PERIPHERAL [None]
